FAERS Safety Report 20789184 (Version 2)
Quarter: 2022Q2

REPORT INFORMATION
  Report Type: Report from Study
  Country: US (occurrence: US)
  Receive Date: 20220505
  Receipt Date: 20220514
  Transmission Date: 20220721
  Serious: No
  Sender: FDA-Public Use
  Company Number: US-JNJFOC-20220456733

PATIENT
  Sex: Female

DRUGS (3)
  1. INFLIXIMAB [Suspect]
     Active Substance: INFLIXIMAB
     Indication: Inflammatory bowel disease
     Route: 042
     Dates: start: 20100331, end: 20100413
  2. HUMIRA [Concomitant]
     Active Substance: ADALIMUMAB
     Indication: Inflammatory bowel disease
     Route: 065
     Dates: start: 20100621, end: 20151210
  3. HUMIRA [Concomitant]
     Active Substance: ADALIMUMAB
     Route: 065
     Dates: start: 20161027

REACTIONS (1)
  - Drug exposure before pregnancy [Recovered/Resolved]
